FAERS Safety Report 7407108-7 (Version None)
Quarter: 2011Q2

REPORT INFORMATION
  Report Type: 
  Country: None (occurrence: None)
  Receive Date: 20110411
  Receipt Date: 20110331
  Transmission Date: 20111010
  Serious: Yes (Other)
  Sender: FDA-Public Use
  Company Number: CHPA2011US04500

PATIENT
  Age: 53 Year
  Sex: Female
  Weight: 65.76 kg

DRUGS (3)
  1. ZANTAC [Concomitant]
     Dosage: UNK, UNK
  2. MAALOX ANTACID/ANTIGAS MS LIQ COOL MINT [Suspect]
     Indication: GASTROOESOPHAGEAL REFLUX DISEASE
     Dosage: 1 TSP, ONCE/SINGLE
     Route: 048
     Dates: start: 20110316, end: 20110316
  3. MAALOX ANTACID/ANTIGAS MS LIQ COOL MINT [Suspect]
     Indication: DYSPEPSIA

REACTIONS (4)
  - OFF LABEL USE [None]
  - GASTROINTESTINAL HAEMORRHAGE [None]
  - SNEEZING [None]
  - EPISTAXIS [None]
